FAERS Safety Report 4378049-7 (Version None)
Quarter: 2004Q2

REPORT INFORMATION
  Report Type: 
  Country: None (occurrence: None)
  Receive Date: 20040609
  Receipt Date: 20040527
  Transmission Date: 20050107
  Serious: Yes (Disabling)
  Sender: FDA-Public Use
  Company Number: 2004UW11334

PATIENT
  Age: 74 Year
  Sex: Female
  Weight: 61 kg

DRUGS (6)
  1. NOLVADEX [Suspect]
     Indication: BREAST CANCER
     Dosage: 20 MG BID PO
     Route: 048
     Dates: start: 20000531
  2. FUROSEMIDE [Concomitant]
  3. INDERAL [Concomitant]
  4. DOLAK - SLOW RELEASE [Concomitant]
  5. VITALUX [Concomitant]
  6. PEPCID [Concomitant]

REACTIONS (2)
  - BLINDNESS UNILATERAL [None]
  - VISION BLURRED [None]
